FAERS Safety Report 25934444 (Version 2)
Quarter: 2025Q4

REPORT INFORMATION
  Report Type: Spontaneous
  Country: US (occurrence: US)
  Receive Date: 20251017
  Receipt Date: 20251028
  Transmission Date: 20260118
  Serious: Yes (Other)
  Sender: JOHNSON AND JOHNSON
  Company Number: US-VIIV HEALTHCARE-US2025130725

PATIENT
  Age: 38 Year
  Sex: Male

DRUGS (6)
  1. RILPIVIRINE [Suspect]
     Active Substance: RILPIVIRINE
     Indication: HIV infection
     Dosage: UNK 600MG/900MG (3ML) THE 1ST OF 2 LOADING DOSES
     Route: 030
     Dates: start: 20250829, end: 20250829
  2. CABENUVA [Suspect]
     Active Substance: CABOTEGRAVIR\RILPIVIRINE
     Indication: HIV infection
     Dosage: UNK 600MG/900MG (3ML) THE 1ST OF 2 LOADING DOSES
     Route: 030
     Dates: start: 20250829, end: 20250829
  3. BUPROPION [Concomitant]
     Active Substance: BUPROPION
     Indication: Product used for unknown indication
     Dosage: 150 MG
  4. SEROQUEL [Concomitant]
     Active Substance: QUETIAPINE FUMARATE
     Indication: Product used for unknown indication
     Dosage: 100 MG
  5. VILOXAZINE [Concomitant]
     Active Substance: VILOXAZINE
     Indication: Product used for unknown indication
     Dosage: 200 MG
  6. NEBIVOLOL [Concomitant]
     Active Substance: NEBIVOLOL
     Indication: Product used for unknown indication
     Dosage: UNK

REACTIONS (1)
  - Depression [Recovering/Resolving]
